FAERS Safety Report 8756375 (Version 2)
Quarter: 2013Q4

REPORT INFORMATION
  Report Type: Spontaneous
  Country: KR (occurrence: KR)
  Receive Date: 20120828
  Receipt Date: 20131105
  Transmission Date: 20140711
  Serious: Yes (Other)
  Sender: FDA-Public Use
  Company Number: KR-009507513-1208KOR010340

PATIENT
  Sex: 0

DRUGS (1)
  1. TEMODAL [Suspect]
     Indication: MALIGNANT GLIOMA
     Dosage: UNK
     Dates: start: 200401, end: 201005

REACTIONS (1)
  - Toxicity to various agents [Unknown]
